FAERS Safety Report 7573477-0 (Version None)
Quarter: 2011Q2

REPORT INFORMATION
  Report Type: 
  Country: None (occurrence: None)
  Receive Date: 20110621
  Receipt Date: 20110607
  Transmission Date: 20111010
  Serious: Yes (Other)
  Sender: FDA-Public Use
  Company Number: JP-1186471

PATIENT
  Age: 48 Year
  Sex: Male

DRUGS (3)
  1. TRAVATAN [Suspect]
     Indication: NORMAL TENSION GLAUCOMA
     Dosage: 1 GTT QD, OPTHALMIC
     Route: 047
     Dates: start: 20100720, end: 20110517
  2. TRAVATAN [Suspect]
     Indication: NORMAL TENSION GLAUCOMA
     Dosage: 1 GTT QD, OPH
     Route: 047
     Dates: start: 20080222, end: 20100719
  3. AZOPT [Concomitant]

REACTIONS (4)
  - ASTHMA [None]
  - SYSTEMIC LUPUS ERYTHEMATOSUS [None]
  - ERYTHEMA ANNULARE [None]
  - PRURITUS GENERALISED [None]
